FAERS Safety Report 5418483-7 (Version None)
Quarter: 2007Q3

REPORT INFORMATION
  Report Type: 
  Country: None (occurrence: None)
  Receive Date: 20070817
  Receipt Date: 20070815
  Transmission Date: 20080115
  Serious: Yes (Hospitalization)
  Sender: FDA-Public Use
  Company Number: US-BOEHRINGER INGELHEIM PHARMACEUTICALS, INC.-2007-BP-19243BP

PATIENT
  Sex: Female

DRUGS (5)
  1. MICARDIS [Suspect]
     Indication: HYPERTENSION
     Route: 048
     Dates: start: 20070401
  2. ZOCOR [Concomitant]
     Indication: BLOOD CHOLESTEROL INCREASED
     Route: 048
  3. SYNTHROID [Concomitant]
     Indication: THYROID DISORDER
     Route: 048
  4. LOPRESSOR [Concomitant]
     Indication: BLOOD PRESSURE INCREASED
     Route: 048
  5. LASIX [Concomitant]
     Indication: FLUID RETENTION
     Route: 048

REACTIONS (4)
  - ANOREXIA [None]
  - BLOOD POTASSIUM INCREASED [None]
  - DIARRHOEA [None]
  - LETHARGY [None]
